FAERS Safety Report 14069995 (Version 1)
Quarter: 2017Q4

REPORT INFORMATION
  Report Type: Spontaneous
  Country: US (occurrence: None)
  Receive Date: 20171010
  Receipt Date: 20171010
  Transmission Date: 20180321
  Serious: No
  Sender: FDA-Public Use
  Company Number: None

PATIENT

DRUGS (2)
  1. HYPERRAB S/D [Suspect]
     Active Substance: HUMAN RABIES VIRUS IMMUNE GLOBULIN
  2. HYPERRAB S/D [Suspect]
     Active Substance: HUMAN RABIES VIRUS IMMUNE GLOBULIN

REACTIONS (2)
  - Product packaging confusion [None]
  - Intercepted drug dispensing error [None]
